FAERS Safety Report 5128002-0 (Version None)
Quarter: 2006Q4

REPORT INFORMATION
  Report Type: 
  Country: None (occurrence: None)
  Receive Date: 20061010
  Receipt Date: 20060927
  Transmission Date: 20070319
  Serious: Yes (Hospitalization)
  Sender: FDA-Public Use
  Company Number: 2006-02484

PATIENT
  Age: 80 Year
  Sex: Male
  Weight: 68 kg

DRUGS (2)
  1. VELCADE [Suspect]
     Indication: MULTIPLE MYELOMA
     Dosage: 1.75 MG/M2, UNK, UNKNOWN
  2. HEXADROL [Concomitant]

REACTIONS (3)
  - CEREBRAL ATROPHY [None]
  - CHOREA [None]
  - LACUNAR INFARCTION [None]
